FAERS Safety Report 9315569 (Version 1)
Quarter: 2013Q2

REPORT INFORMATION
  Report Type: Spontaneous
  Country: US (occurrence: US)
  Receive Date: 20130529
  Receipt Date: 20130529
  Transmission Date: 20140414
  Serious: Yes (Hospitalization, Other)
  Sender: FDA-Public Use
  Company Number: US-ASTRAZENECA-2013SE35582

PATIENT
  Age: 71 Year
  Sex: Male
  Weight: 113.4 kg

DRUGS (3)
  1. SYMBICORT [Suspect]
     Indication: RADIATION PNEUMONITIS
     Dosage: 320 MCG BID
     Route: 055
     Dates: start: 2012
  2. GABAPENTIN [Concomitant]
     Indication: NEUROPATHY PERIPHERAL
     Route: 048
  3. ADVAIR [Concomitant]
     Dates: end: 2012

REACTIONS (7)
  - Viral infection [Recovered/Resolved]
  - Pneumonia [Recovered/Resolved]
  - Dyspnoea [Unknown]
  - Aphagia [Unknown]
  - Asthenia [Unknown]
  - Therapeutic response unexpected [Unknown]
  - Intentional drug misuse [Unknown]
